FAERS Safety Report 13676849 (Version 1)
Quarter: 2017Q2

REPORT INFORMATION
  Report Type: Spontaneous
  Country: GB (occurrence: GB)
  Receive Date: 20170622
  Receipt Date: 20170622
  Transmission Date: 20170830
  Serious: Yes (Disabling, Other)
  Sender: FDA-Public Use
  Company Number: GB-ACCORD-052895

PATIENT
  Age: 52 Year
  Sex: Male
  Weight: 136.52 kg

DRUGS (9)
  1. TRAMADOL/TRAMADOL HYDROCHLORIDE [Suspect]
     Active Substance: TRAMADOL HYDROCHLORIDE
     Indication: NEURALGIA
     Dosage: REDUCED TO 150 MG FOUR TIMES A DAY,?HIGH DOSE
     Route: 048
     Dates: start: 20130712
  2. RAMIPRIL. [Concomitant]
     Active Substance: RAMIPRIL
  3. TOSTRAN [Concomitant]
     Active Substance: TESTOSTERONE
  4. CLENIL MODULITE [Concomitant]
     Active Substance: BECLOMETHASONE DIPROPIONATE
  5. INDOMETACIN/INDOMETACIN MEGLUMINE/INDOMETACIN SODIUM/INDOMETACIN SODIUM TRIHYDRATE/INDOMETACIN TROPI [Concomitant]
  6. SALBUTAMOL [Concomitant]
     Active Substance: ALBUTEROL
  7. PREGABALIN. [Concomitant]
     Active Substance: PREGABALIN
  8. ZOLMITRIPTAN. [Concomitant]
     Active Substance: ZOLMITRIPTAN
  9. ORAMORPH [Concomitant]
     Active Substance: MORPHINE SULFATE

REACTIONS (6)
  - Withdrawal syndrome [Unknown]
  - Endocrine toxicity [Not Recovered/Not Resolved]
  - Androgen deficiency [Unknown]
  - Adrenocortical insufficiency acute [Unknown]
  - Cortisol decreased [Unknown]
  - Malaise [Unknown]

NARRATIVE: CASE EVENT DATE: 201604
